FAERS Safety Report 13097348 (Version 1)
Quarter: 2017Q1

REPORT INFORMATION
  Report Type: Spontaneous
  Country: US (occurrence: US)
  Receive Date: 20170109
  Receipt Date: 20170109
  Transmission Date: 20170428
  Serious: No
  Sender: FDA-Public Use
  Company Number: None

PATIENT
  Age: 8 Year
  Sex: Male
  Weight: 26.2 kg

DRUGS (1)
  1. LEVOCARNITINE. [Suspect]
     Active Substance: LEVOCARNITINE
     Indication: PARTIAL SEIZURES
     Route: 048
     Dates: start: 20160914, end: 20160926

REACTIONS (3)
  - Product substitution issue [None]
  - Seizure [None]
  - Condition aggravated [None]

NARRATIVE: CASE EVENT DATE: 20160914
